FAERS Safety Report 10347591 (Version 2)
Quarter: 2014Q3

REPORT INFORMATION
  Report Type: Spontaneous
  Country: US (occurrence: None)
  Receive Date: 20140725
  Receipt Date: 20140825
  Transmission Date: 20150326
  Serious: Yes (Other)
  Sender: FDA-Public Use
  Company Number: UNT-2014-004138

PATIENT
  Age: 84 Year
  Sex: Female
  Weight: 76.2 kg

DRUGS (1)
  1. TYVASO [Suspect]
     Active Substance: TREPROSTINIL
     Indication: PULMONARY ARTERIAL HYPERTENSION
     Route: 055
     Dates: start: 20140325

REACTIONS (9)
  - Nausea [None]
  - Cardiac flutter [None]
  - Syncope [None]
  - Dizziness [None]
  - Skin discolouration [None]
  - Paraesthesia [None]
  - Activities of daily living impaired [None]
  - Abdominal pain upper [None]
  - Agitation [None]

NARRATIVE: CASE EVENT DATE: 20140711
